FAERS Safety Report 6079318-5 (Version None)
Quarter: 2009Q1

REPORT INFORMATION
  Report Type: 
  Country: None (occurrence: None)
  Receive Date: 20090216
  Receipt Date: 20090211
  Transmission Date: 20090719
  Serious: Yes (Other)
  Sender: FDA-Public Use
  Company Number: US-MERCK-0902USA01814

PATIENT
  Age: 24 Year
  Sex: Female

DRUGS (3)
  1. PROPECIA [Suspect]
     Route: 048
  2. VITAMINS (UNSPECIFIED) [Concomitant]
     Route: 065
  3. PROGESTERONE [Concomitant]
     Route: 065

REACTIONS (3)
  - ABORTION SPONTANEOUS [None]
  - DRUG EXPOSURE DURING PREGNANCY [None]
  - PATERNAL DRUGS AFFECTING FOETUS [None]
